FAERS Safety Report 6638962-4 (Version None)
Quarter: 2010Q1

REPORT INFORMATION
  Report Type: 
  Country: None (occurrence: None)
  Receive Date: 20100316
  Receipt Date: 20100316
  Transmission Date: 20100710
  Serious: Yes (Other)
  Sender: FDA-Public Use
  Company Number: None

PATIENT
  Age: 53 Year
  Sex: Female
  Weight: 77.1115 kg

DRUGS (1)
  1. LEVAQUIN [Suspect]
     Dosage: 1 DOSE DAILY IV
     Route: 042
     Dates: start: 20091217, end: 20091218

REACTIONS (4)
  - ARTHRALGIA [None]
  - BONE PAIN [None]
  - CHILLS [None]
  - HYPERSENSITIVITY [None]
